FAERS Safety Report 24170517 (Version 1)
Quarter: 2024Q3

REPORT INFORMATION
  Report Type: Spontaneous
  Country: FR (occurrence: FR)
  Receive Date: 20240803
  Receipt Date: 20240803
  Transmission Date: 20241017
  Serious: Yes (Other)
  Sender: TEVA
  Company Number: None

PATIENT
  Age: 47 Year
  Sex: Female

DRUGS (2)
  1. AMOXICILLIN [Suspect]
     Active Substance: AMOXICILLIN
     Indication: Vaginal infection
     Dosage: 1 G, TID, AMOXICILLINE NOS
     Route: 048
     Dates: start: 202103, end: 202104
  2. ZINC SULFATE [Concomitant]
     Active Substance: ZINC SULFATE
     Indication: Product used for unknown indication
     Dosage: UNKNOWN
     Route: 065

REACTIONS (2)
  - Superinfection fungal [Not Recovered/Not Resolved]
  - Superinfection bacterial [Not Recovered/Not Resolved]

NARRATIVE: CASE EVENT DATE: 20210401
